FAERS Safety Report 9841917 (Version 1)
Quarter: 2013Q4

REPORT INFORMATION
  Report Type: Spontaneous
  Country: US (occurrence: None)
  Receive Date: 20131219
  Receipt Date: 20131219
  Transmission Date: 20140711
  Serious: Yes (Other)
  Sender: FDA-Public Use
  Company Number: 163-20785-13050764

PATIENT
  Age: 71 Year
  Sex: Male

DRUGS (9)
  1. THALOMID (THALIDOMIDE) (100 MILLIGRAM, CAPSULES) [Suspect]
     Indication: PLASMA CELL MYELOMA
     Dosage: 100 MG, 28 IN 28 DK PO
     Route: 048
     Dates: start: 20130419
  2. AMLODIPINE BESYLATE (AMLODIPINE BESILATE) [Concomitant]
  3. CENTRUM SILVER (CENTRUM SILVER) [Concomitant]
  4. DEXAMETHASONE (DEXAMETHASONE) [Concomitant]
  5. GLIMEPIRIDE (GLIMEPIRIDE) [Concomitant]
  6. GLIPIZIDE ER (GLIPIZIDE) [Concomitant]
  7. LISINOPRIL (LISINIOPRIL) [Concomitant]
  8. NEXIUM (ESOMEPRAZOLE) [Concomitant]
  9. VITAMIN B12 (CYANOCOBALAMIN) [Concomitant]

REACTIONS (3)
  - Blister [None]
  - Fatigue [None]
  - Rash [None]
